FAERS Safety Report 5688557-4 (Version None)
Quarter: 2008Q1

REPORT INFORMATION
  Report Type: 
  Country: None (occurrence: None)
  Receive Date: 20080331
  Receipt Date: 20080320
  Transmission Date: 20080703
  Serious: Yes (Hospitalization)
  Sender: FDA-Public Use
  Company Number: IT-BAYER-200815248GPV

PATIENT
  Age: 56 Year
  Sex: Male

DRUGS (5)
  1. NEXAVAR [Suspect]
     Indication: THYROID CANCER
     Dosage: TOTAL DAILY DOSE: 800 MG  UNIT DOSE: 200 MG
     Route: 048
     Dates: start: 20080222, end: 20080306
  2. CARBOPLATIN [Concomitant]
     Indication: DRUG USE FOR UNKNOWN INDICATION
     Route: 042
     Dates: start: 20080215, end: 20080215
  3. DOXORUBICIN HCL [Concomitant]
     Indication: DRUG USE FOR UNKNOWN INDICATION
     Route: 042
     Dates: start: 20080215, end: 20080215
  4. GARDENALE [Concomitant]
     Indication: DRUG USE FOR UNKNOWN INDICATION
     Route: 048
  5. LANSOX [Concomitant]
     Indication: DRUG USE FOR UNKNOWN INDICATION
     Route: 048

REACTIONS (3)
  - ERYTHEMA MULTIFORME [None]
  - GENERALISED ERYTHEMA [None]
  - PRURITUS [None]
